FAERS Safety Report 23360357 (Version 1)
Quarter: 2024Q1

REPORT INFORMATION
  Report Type: Spontaneous
  Country: IT (occurrence: IT)
  Receive Date: 20240103
  Receipt Date: 20240103
  Transmission Date: 20240410
  Serious: Yes (Hospitalization)
  Sender: FDA-Public Use
  Company Number: None

PATIENT
  Age: 66 Year
  Sex: Female
  Weight: 60 kg

DRUGS (1)
  1. TECVAYLI [Suspect]
     Active Substance: TECLISTAMAB-CQYV
     Indication: Plasma cell myeloma refractory
     Dosage: 1ST CYCLE: 23/10 0.06 MG/KG DAY 1, 25/10 0.3 MG/KG DAY 3, 27/10 1.5 MG/KG DAY 7 (7 DAY CYCLE) 2ND CY
     Route: 058
     Dates: start: 20231023, end: 20231103

REACTIONS (2)
  - Acute respiratory failure [Recovered/Resolved]
  - Bronchiolitis [Recovered/Resolved]

NARRATIVE: CASE EVENT DATE: 20231109
